FAERS Safety Report 8397806-3 (Version None)
Quarter: 2012Q2

REPORT INFORMATION
  Report Type: 
  Country: None (occurrence: None)
  Receive Date: 20120531
  Receipt Date: 20120521
  Transmission Date: 20120825
  Serious: Yes (Hospitalization)
  Sender: FDA-Public Use
  Company Number: US-US-EMD SERONO, INC.-7134861

PATIENT
  Sex: Male

DRUGS (1)
  1. REBIF [Suspect]
     Indication: RELAPSING-REMITTING MULTIPLE SCLEROSIS
     Route: 058
     Dates: start: 20021008

REACTIONS (9)
  - CAROTID ARTERY OCCLUSION [None]
  - SINUSITIS [None]
  - NASOPHARYNGITIS [None]
  - INNER EAR DISORDER [None]
  - EXCORIATION [None]
  - ELECTROCARDIOGRAM T WAVE INVERSION [None]
  - FACE INJURY [None]
  - INJECTION SITE PAIN [None]
  - LOSS OF CONSCIOUSNESS [None]
